FAERS Safety Report 5128619-3 (Version None)
Quarter: 2006Q4

REPORT INFORMATION
  Report Type: 
  Country: None (occurrence: None)
  Receive Date: 20061011
  Receipt Date: 20060905
  Transmission Date: 20070319
  Serious: Yes (Hospitalization, Other)
  Sender: FDA-Public Use
  Company Number: 2006-05-0423

PATIENT
  Age: 49 Year
  Sex: Male
  Weight: 68.4932 kg

DRUGS (8)
  1. PEG-INTRON [Suspect]
     Indication: HEPATITIS C
     Dosage: SC
     Route: 058
     Dates: start: 20050822, end: 20060725
  2. REBETOL [Suspect]
     Indication: HEPATITIS C
     Dosage: PO
     Route: 048
     Dates: start: 20050822, end: 20060725
  3. DETROL [Concomitant]
  4. KLONOPIN [Concomitant]
  5. PAXIL [Concomitant]
  6. REMERON [Concomitant]
  7. TYLENOL EXTRA-STRENGTH [Concomitant]
  8. ZIAC [Concomitant]

REACTIONS (18)
  - ABDOMINAL DISTENSION [None]
  - ANIMAL BITE [None]
  - BLOOD SODIUM DECREASED [None]
  - CHILLS [None]
  - CHROMATURIA [None]
  - DIARRHOEA [None]
  - DRUG INEFFECTIVE [None]
  - DYSURIA [None]
  - HOMICIDAL IDEATION [None]
  - MEMORY IMPAIRMENT [None]
  - PAIN [None]
  - PAIN IN EXTREMITY [None]
  - PYREXIA [None]
  - SCHIZOPHRENIA [None]
  - SUICIDAL IDEATION [None]
  - URINARY RETENTION [None]
  - WEIGHT DECREASED [None]
  - WHITE BLOOD CELL COUNT DECREASED [None]
